FAERS Safety Report 12480273 (Version 3)
Quarter: 2016Q3

REPORT INFORMATION
  Report Type: Spontaneous
  Country: US (occurrence: US)
  Receive Date: 20160620
  Receipt Date: 20160718
  Transmission Date: 20161109
  Serious: Yes (Life-Threatening, Other)
  Sender: FDA-Public Use
  Company Number: US-DRREDDYS-DRL/USA/16/0080561

PATIENT
  Age: 28 Year
  Sex: Male
  Weight: 113.39 kg

DRUGS (2)
  1. OLANZAPINE TABLETS 2.5 MG, 5 MG, 7.5 MG, 10 MG [Suspect]
     Active Substance: OLANZAPINE
     Indication: PARANOIA
     Route: 048
  2. OLANZAPINE TABLETS 2.5 MG, 5 MG, 7.5 MG, 10 MG [Suspect]
     Active Substance: OLANZAPINE
     Indication: DEPRESSION
     Route: 048

REACTIONS (8)
  - Colonic abscess [Recovering/Resolving]
  - Gastrointestinal infection [Recovering/Resolving]
  - Diverticulitis [Recovering/Resolving]
  - Delusion [Recovering/Resolving]
  - Drug ineffective [Unknown]
  - Product quality issue [Unknown]
  - Schizophrenia [Recovering/Resolving]
  - Impaired driving ability [Recovering/Resolving]
